FAERS Safety Report 5550638-3 (Version None)
Quarter: 2007Q4

REPORT INFORMATION
  Report Type: 
  Country: None (occurrence: None)
  Receive Date: 20071212
  Receipt Date: 20071204
  Transmission Date: 20080405
  Serious: Yes (Hospitalization)
  Sender: FDA-Public Use
  Company Number: FI-WYE-G00725407

PATIENT
  Sex: Male

DRUGS (2)
  1. TEMSIROLIMUS [Suspect]
     Indication: RENAL CELL CARCINOMA STAGE UNSPECIFIED
     Route: 042
     Dates: start: 20071123
  2. PANACOD [Concomitant]

REACTIONS (2)
  - HAEMATURIA [None]
  - URINARY RETENTION [None]
